FAERS Safety Report 7808580-0 (Version None)
Quarter: 2011Q4

REPORT INFORMATION
  Report Type: 
  Country: None (occurrence: None)
  Receive Date: 20111006
  Receipt Date: 20110926
  Transmission Date: 20120403
  Serious: Yes (Death)
  Sender: FDA-Public Use
  Company Number: 1055875

PATIENT
  Age: 57 Year
  Sex: Female
  Weight: 57 kg

DRUGS (15)
  1. (GENTAMICIN SULFATE) [Suspect]
     Indication: NEUTROPENIC INFECTION
     Dates: start: 20110810
  2. GEMCITABINE HYDROCHLORIDE [Suspect]
     Indication: PANCREATIC CARCINOMA
     Dosage: 1596 MG, INTRAVENOUS
     Route: 042
     Dates: start: 20110729, end: 20110729
  3. IRBESARTAN [Concomitant]
  4. DOTHIEPIN HYDROCHLORIDE [Concomitant]
  5. BISOPROLOL [Concomitant]
  6. DIAZEPAM [Concomitant]
  7. FUROSEMIDE [Concomitant]
  8. URSODIOL [Concomitant]
  9. ZOPICLONE [Concomitant]
  10. ISOSORBIDE MONONITRATE [Concomitant]
  11. OXYCONTIN [Concomitant]
  12. PANTOPRAZOLE [Concomitant]
  13. SIMVASTATIN [Concomitant]
  14. PIPERACILLIN AND TAZOBACTAM [Suspect]
     Indication: NEUTROPENIC INFECTION
     Dosage: 4.5 G, 1 DAY, INTRAVENOUS
     Route: 042
     Dates: start: 20110810
  15. WARFARIN SODIUM [Concomitant]

REACTIONS (2)
  - TOXIC EPIDERMAL NECROLYSIS [None]
  - INTERNATIONAL NORMALISED RATIO INCREASED [None]
